FAERS Safety Report 22541078 (Version 2)
Quarter: 2023Q2

REPORT INFORMATION
  Report Type: Other
  Country: US (occurrence: None)
  Receive Date: 20230609
  Receipt Date: 20230612
  Transmission Date: 20230721
  Serious: No
  Sender: FDA-Public Use
  Company Number: US-ROCHE-3362165

PATIENT
  Age: 70 Year
  Sex: Female
  Weight: 79.45 kg

DRUGS (1)
  1. OCREVUS [Suspect]
     Active Substance: OCRELIZUMAB
     Indication: Primary progressive multiple sclerosis
     Dosage: DOT: 20-APR-2023, 04-MAY-2023.
     Route: 042
     Dates: start: 20230420

REACTIONS (3)
  - JC polyomavirus test positive [Not Recovered/Not Resolved]
  - Asthenia [Recovered/Resolved]
  - Fall [Unknown]

NARRATIVE: CASE EVENT DATE: 20230501
